FAERS Safety Report 17015130 (Version 2)
Quarter: 2019Q4

REPORT INFORMATION
  Report Type: Spontaneous
  Country: CO (occurrence: CO)
  Receive Date: 20191111
  Receipt Date: 20191127
  Transmission Date: 20200122
  Serious: Yes (Other)
  Sender: FDA-Public Use
  Company Number: NVSC2019CO024992

PATIENT
  Age: 67 Year
  Sex: Female
  Weight: 46.5 kg

DRUGS (6)
  1. CLONAZEPAM. [Concomitant]
     Active Substance: CLONAZEPAM
     Indication: PRODUCT USED FOR UNKNOWN INDICATION
     Dosage: UNK (2 OF 0.5)
     Route: 065
  2. IBANDRONIC ACID. [Concomitant]
     Active Substance: IBANDRONIC ACID
     Indication: PRODUCT USED FOR UNKNOWN INDICATION
     Dosage: 150 MG, QMO
     Route: 065
  3. LOSARTAN. [Suspect]
     Active Substance: LOSARTAN
     Indication: HYPERTENSION
     Dosage: 50 MG, Q12H
     Route: 048
     Dates: start: 2013
  4. ACLASTA [Suspect]
     Active Substance: ZOLEDRONIC ACID
     Indication: OSTEOPOROSIS
     Dosage: 5 MG, Q12MO
     Route: 042
     Dates: start: 20191003, end: 20191003
  5. ACLASTA [Suspect]
     Active Substance: ZOLEDRONIC ACID
     Dosage: 5 MG (THIRD DOSE, 03 OCT UNKNOWN YEAR)
     Route: 065
  6. LEVOTHYROXINE. [Concomitant]
     Active Substance: LEVOTHYROXINE
     Indication: HYPOTHYROIDISM
     Dosage: 75 UG, QD
     Route: 048
     Dates: start: 2000

REACTIONS (20)
  - Eye discharge [Not Recovered/Not Resolved]
  - Eye pain [Unknown]
  - Eye irritation [Not Recovered/Not Resolved]
  - Diplopia [Unknown]
  - Dyschromatopsia [Unknown]
  - Headache [Unknown]
  - Visual acuity tests abnormal [Unknown]
  - Photophobia [Unknown]
  - Foreign body sensation in eyes [Unknown]
  - Ocular hyperaemia [Unknown]
  - Swelling of eyelid [Unknown]
  - Visual field defect [Unknown]
  - Conjunctival haemorrhage [Unknown]
  - Eye pruritus [Not Recovered/Not Resolved]
  - Optic atrophy [Unknown]
  - Maculopathy [Unknown]
  - Eye swelling [Unknown]
  - Eye inflammation [Unknown]
  - Cataract subcapsular [Unknown]
  - Vision blurred [Unknown]

NARRATIVE: CASE EVENT DATE: 20191003
